FAERS Safety Report 9076449 (Version 1)
Quarter: 2013Q1

REPORT INFORMATION
  Report Type: Spontaneous
  Country: US (occurrence: US)
  Receive Date: 20130129
  Receipt Date: 20130129
  Transmission Date: 20140127
  Serious: No
  Sender: FDA-Public Use
  Company Number: US-ABBOTT-12P-163-0942599-00

PATIENT
  Age: 48 None
  Sex: Male

DRUGS (4)
  1. HUMIRA 40 MG/0.8 ML PEN [Suspect]
     Indication: PSORIASIS
     Route: 058
     Dates: start: 20120604, end: 20120604
  2. UNKNOWN MEDICATION [Concomitant]
     Indication: NEPHROLITHIASIS
     Route: 048
     Dates: start: 20120529
  3. THYROID THERAPY [Concomitant]
     Indication: THYROID DISORDER
     Route: 048
  4. BLOOD PRESSURE MEDICATION [Concomitant]
     Indication: BLOOD PRESSURE
     Route: 048

REACTIONS (2)
  - Dry mouth [Recovered/Resolved]
  - Nausea [Recovered/Resolved]
